FAERS Safety Report 13208527 (Version 2)
Quarter: 2017Q4

REPORT INFORMATION
  Report Type: Spontaneous
  Country: US (occurrence: US)
  Receive Date: 20170209
  Receipt Date: 20171025
  Transmission Date: 20180320
  Serious: Yes (Hospitalization)
  Sender: FDA-Public Use
  Company Number: US-TEVA-736977USA

PATIENT
  Age: 59 Year
  Sex: Female

DRUGS (9)
  1. NADOLOL. [Concomitant]
     Active Substance: NADOLOL
  2. ACYCLOVIR. [Concomitant]
     Active Substance: ACYCLOVIR
  3. COPAXONE [Suspect]
     Active Substance: GLATIRAMER ACETATE
     Dosage: PRE FILLED SYRINGE,INJECT ONE SYRINGE AS DIRECTED BY PHYSICIAN
     Route: 058
     Dates: start: 20161114
  4. TAMSULOSIN [Concomitant]
     Active Substance: TAMSULOSIN
  5. COPAXONE [Suspect]
     Active Substance: GLATIRAMER ACETATE
     Indication: MULTIPLE SCLEROSIS
     Dosage: PRE FILLED SYRINGE
     Route: 058
     Dates: start: 201601
  6. CARBAMAZEPIN [Concomitant]
     Active Substance: CARBAMAZEPINE
  7. GABAPENTIN. [Concomitant]
     Active Substance: GABAPENTIN
  8. CIPRO [Concomitant]
     Active Substance: CIPROFLOXACIN HYDROCHLORIDE
  9. NORCO [Concomitant]
     Active Substance: ACETAMINOPHEN\HYDROCODONE BITARTRATE

REACTIONS (2)
  - Fatigue [Not Recovered/Not Resolved]
  - Spinal cord operation [Unknown]

NARRATIVE: CASE EVENT DATE: 20170125
